FAERS Safety Report 16831930 (Version 1)
Quarter: 2019Q3

REPORT INFORMATION
  Report Type: Spontaneous
  Country: US (occurrence: US)
  Receive Date: 20190920
  Receipt Date: 20190920
  Transmission Date: 20191005
  Serious: No
  Sender: FDA-Public Use
  Company Number: US-TEVA-2019-US-1110168

PATIENT
  Sex: Female

DRUGS (1)
  1. QUETIAPINE FUMARATE TEVA [Suspect]
     Active Substance: QUETIAPINE FUMARATE

REACTIONS (3)
  - Insomnia [Unknown]
  - Product odour abnormal [Unknown]
  - Retching [Unknown]
